FAERS Safety Report 20882486 (Version 1)
Quarter: 2022Q2

REPORT INFORMATION
  Report Type: Spontaneous
  Country: TR (occurrence: TR)
  Receive Date: 20220527
  Receipt Date: 20220527
  Transmission Date: 20220721
  Serious: Yes (Other)
  Sender: FDA-Public Use
  Company Number: TR-GYP-001079

PATIENT
  Age: 13 Year
  Sex: Male

DRUGS (8)
  1. PREDNISONE [Suspect]
     Active Substance: PREDNISONE
     Indication: Hodgkin^s disease nodular sclerosis stage IV
     Route: 065
  2. BLEOMYCIN [Concomitant]
     Active Substance: BLEOMYCIN SULFATE
     Indication: Hodgkin^s disease nodular sclerosis stage IV
     Route: 065
  3. ETOPOSIDE [Concomitant]
     Active Substance: ETOPOSIDE
     Indication: Hodgkin^s disease nodular sclerosis stage IV
     Route: 065
  4. DOXORUBICIN [Concomitant]
     Active Substance: DOXORUBICIN
     Indication: Hodgkin^s disease nodular sclerosis stage IV
     Route: 065
  5. CYCLOPHOSPHAMIDE [Concomitant]
     Active Substance: CYCLOPHOSPHAMIDE
     Indication: Hodgkin^s disease nodular sclerosis stage IV
     Route: 065
  6. VINCRISTINE [Concomitant]
     Active Substance: VINCRISTINE
     Indication: Hodgkin^s disease nodular sclerosis stage IV
     Route: 065
  7. PROCARBAZINE [Concomitant]
     Active Substance: PROCARBAZINE
     Indication: Hodgkin^s disease nodular sclerosis stage IV
     Route: 065
  8. PREDNISONE [Suspect]
     Active Substance: PREDNISONE
     Indication: Pneumonitis
     Dosage: 2 MG/KG
     Route: 065

REACTIONS (5)
  - Cushingoid [Unknown]
  - General physical health deterioration [Unknown]
  - Myopathy [Recovered/Resolved]
  - Respiratory failure [Recovered/Resolved]
  - Therapeutic product effect incomplete [Unknown]
